FAERS Safety Report 8255827 (Version 3)
Quarter: 2013Q2

REPORT INFORMATION
  Report Type: Spontaneous
  Country: JP (occurrence: JP)
  Receive Date: 20111120
  Receipt Date: 20130419
  Transmission Date: 20140414
  Serious: Yes (Hospitalization)
  Sender: FDA-Public Use
  Company Number: JP-ELI_LILLY_AND_COMPANY-JP201108003085

PATIENT
  Age: 65 Year
  Sex: Female

DRUGS (2)
  1. FORTEO [Suspect]
     Dosage: UNK
     Route: 058
     Dates: start: 20110711, end: 20111025
  2. FORTEO [Suspect]
     Dosage: UNK
     Route: 058
     Dates: start: 20120404

REACTIONS (2)
  - Cerebral infarction [Unknown]
  - Injection site bruising [Recovered/Resolved]
